FAERS Safety Report 10023622 (Version 2)
Quarter: 2014Q1

REPORT INFORMATION
  Report Type: Spontaneous
  Country: ES (occurrence: ES)
  Receive Date: 20140320
  Receipt Date: 20140320
  Transmission Date: 20141002
  Serious: Yes (Hospitalization, Other)
  Sender: FDA-Public Use
  Company Number: ES-JNJFOC-20140217981

PATIENT
  Age: 46 Year
  Sex: Female
  Weight: 60 kg

DRUGS (7)
  1. REMICADE [Suspect]
     Indication: CROHN^S DISEASE
     Dosage: APPROX. NUM OF TOTAL INFUSIONS: 42
     Route: 042
     Dates: end: 20140114
  2. REMICADE [Suspect]
     Indication: CROHN^S DISEASE
     Dosage: APPROXIMATE TOTAL NUMBER OF INFUSIONS PATIENT RECEIVED 42
     Route: 042
     Dates: start: 20070101, end: 20140103
  3. AZATHIOPRINE [Suspect]
     Indication: CROHN^S DISEASE
     Dosage: START DATE ALSO REPORTED AS 2007
     Route: 048
     Dates: start: 2001, end: 20140114
  4. LANZOPRAZOL [Concomitant]
     Indication: GASTROOESOPHAGEAL REFLUX DISEASE
     Route: 065
     Dates: start: 2010
  5. MESALAZINE [Concomitant]
     Indication: CROHN^S DISEASE
     Route: 048
     Dates: start: 2001
  6. PARACETAMOL [Concomitant]
     Dosage: WHEN NEEDED
     Route: 048
  7. BROMAZEPAM [Concomitant]
     Indication: ANXIETY
     Route: 048

REACTIONS (3)
  - Pneumococcal sepsis [Recovered/Resolved]
  - Gastrooesophageal reflux disease [Unknown]
  - Renal failure [Unknown]
